FAERS Safety Report 4504790-9 (Version None)
Quarter: 2004Q4

REPORT INFORMATION
  Report Type: 
  Country: None (occurrence: None)
  Receive Date: 20041118
  Receipt Date: 20041115
  Transmission Date: 20050328
  Serious: Yes (Life-Threatening, Hospitalization, Disabling)
  Sender: FDA-Public Use
  Company Number: US-MERCK-0411USA02511

PATIENT
  Age: 59 Year
  Sex: Male

DRUGS (7)
  1. VIOXX [Suspect]
     Indication: ARTHRITIS
     Route: 048
     Dates: start: 20000101, end: 20041001
  2. PRINIVIL [Concomitant]
     Route: 065
  3. PLAVIX [Concomitant]
     Route: 065
  4. GLUCOPHAGE [Concomitant]
     Route: 065
  5. VICODIN [Concomitant]
     Route: 065
  6. AGGRENOX [Concomitant]
     Route: 065
  7. BEXTRA [Concomitant]
     Route: 065

REACTIONS (4)
  - CARDIAC DISORDER [None]
  - CEREBROVASCULAR ACCIDENT [None]
  - CHEST PAIN [None]
  - MYOCARDIAL INFARCTION [None]
